FAERS Safety Report 9039264 (Version 1)
Quarter: 2013Q1

REPORT INFORMATION
  Report Type: Spontaneous
  Country: US (occurrence: None)
  Receive Date: 20130123
  Receipt Date: 20130123
  Transmission Date: 20140127
  Serious: Yes (Hospitalization)
  Sender: FDA-Public Use
  Company Number: None

PATIENT
  Age: 53 Year
  Sex: Female
  Weight: 80.74 kg

DRUGS (1)
  1. LISINOPRIL [Suspect]

REACTIONS (3)
  - Drug hypersensitivity [None]
  - Swollen tongue [None]
  - Dyspnoea [None]
